FAERS Safety Report 9903532 (Version 2)
Quarter: 2014Q1

REPORT INFORMATION
  Report Type: Spontaneous
  Country: US (occurrence: US)
  Receive Date: 20140217
  Receipt Date: 20140217
  Transmission Date: 20141002
  Serious: Yes (Hospitalization)
  Sender: FDA-Public Use
  Company Number: US-GILEAD-2012-0053296

PATIENT
  Age: 55 Year
  Sex: Female
  Weight: 57.14 kg

DRUGS (9)
  1. LETAIRIS [Suspect]
     Indication: PULMONARY HYPERTENSION
     Dosage: 10 MG, UNK
     Route: 048
     Dates: start: 20090602
  2. VENTAVIS [Concomitant]
     Indication: PULMONARY HYPERTENSION
  3. FLAXSEED OIL [Concomitant]
  4. VITAMIN D                          /00107901/ [Concomitant]
  5. CARDIZEM CD [Concomitant]
     Indication: DYSPNOEA EXERTIONAL
  6. REVATIO [Concomitant]
     Indication: PULMONARY HYPERTENSION
  7. HYDROCHLOROTHIAZIDE [Concomitant]
  8. IRON [Concomitant]
     Indication: ANAEMIA
  9. ASPIRIN [Concomitant]

REACTIONS (1)
  - Anaemia [Recovered/Resolved]
